FAERS Safety Report 21119426 (Version 3)
Quarter: 2022Q3

REPORT INFORMATION
  Report Type: Report from Study
  Country: US (occurrence: US)
  Receive Date: 20220722
  Receipt Date: 20220812
  Transmission Date: 20221027
  Serious: Yes (Hospitalization, Other)
  Sender: FDA-Public Use
  Company Number: US-BAYER-2022A097469

PATIENT
  Age: 48 Year
  Sex: Male

DRUGS (5)
  1. STIVARGA [Suspect]
     Active Substance: REGORAFENIB
     Indication: Colorectal cancer
     Dosage: 120 MG, QD (TAKE 3 TABLETS DAILY FOR 3 WEEKS ON, 1 WEEK OFF)
     Route: 048
     Dates: start: 20220704
  2. STIVARGA [Suspect]
     Active Substance: REGORAFENIB
     Indication: Rectosigmoid cancer
  3. STIVARGA [Suspect]
     Active Substance: REGORAFENIB
     Indication: Metastases to liver
  4. STIVARGA [Suspect]
     Active Substance: REGORAFENIB
     Indication: Metastases to biliary tract
  5. LONSURF [Concomitant]
     Active Substance: TIPIRACIL HYDROCHLORIDE\TRIFLURIDINE
     Indication: Colorectal cancer
     Dosage: TAKE 3 TABLETS TWICE A DAY ON DAYS 1- 5 AND DAYS 8-12 EVERY 28 DAYS.
     Dates: start: 20220509

REACTIONS (13)
  - Hepatic failure [Unknown]
  - Gait disturbance [Not Recovered/Not Resolved]
  - Fatigue [Not Recovered/Not Resolved]
  - Asthenia [Not Recovered/Not Resolved]
  - Terminal state [None]
  - Confusional state [None]
  - Speech disorder [Not Recovered/Not Resolved]
  - Dyspnoea [Not Recovered/Not Resolved]
  - Laboratory test abnormal [Not Recovered/Not Resolved]
  - Chromaturia [Not Recovered/Not Resolved]
  - Dysphonia [Not Recovered/Not Resolved]
  - Tremor [None]
  - Off label use [None]

NARRATIVE: CASE EVENT DATE: 20220704
